FAERS Safety Report 6861428-3 (Version None)
Quarter: 2010Q3

REPORT INFORMATION
  Report Type: 
  Country: None (occurrence: None)
  Receive Date: 20100715
  Receipt Date: 20100708
  Transmission Date: 20110219
  Serious: Yes (Other)
  Sender: FDA-Public Use
  Company Number: 015202

PATIENT
  Age: 9 Year
  Sex: Male

DRUGS (3)
  1. LEVETIRACETAM [Suspect]
     Dosage: (1000 MG)
  2. CLOBAZAM (CLOBAZAM) [Suspect]
  3. TOPIRAMATE [Suspect]

REACTIONS (8)
  - ABNORMAL BEHAVIOUR [None]
  - CONVULSION [None]
  - GRAND MAL CONVULSION [None]
  - MYOCLONUS [None]
  - PETIT MAL EPILEPSY [None]
  - PYREXIA [None]
  - STATUS EPILEPTICUS [None]
  - THROMBOCYTOPENIA [None]
